FAERS Safety Report 8334735-5 (Version None)
Quarter: 2012Q2

REPORT INFORMATION
  Report Type: 
  Country: None (occurrence: None)
  Receive Date: 20120503
  Receipt Date: 20120430
  Transmission Date: 20120825
  Serious: Yes (Other)
  Sender: FDA-Public Use
  Company Number: CA-TEVA-335926USA

PATIENT
  Age: 49 Year
  Sex: Female

DRUGS (5)
  1. METHYLTHIONINIUM CHLORIDE [Suspect]
     Route: 065
  2. FLUVOXAMINE MALEATE [Suspect]
     Route: 065
  3. FENTANYL [Suspect]
     Indication: ANAESTHESIA
     Route: 042
  4. PAROXETINE [Suspect]
     Route: 065
  5. MEPERIDINE HCL [Suspect]
     Route: 065

REACTIONS (1)
  - SEROTONIN SYNDROME [None]
